FAERS Safety Report 5980058-9 (Version None)
Quarter: 2008Q4

REPORT INFORMATION
  Report Type: 
  Country: None (occurrence: None)
  Receive Date: 20081205
  Receipt Date: 20081125
  Transmission Date: 20090506
  Serious: Yes (Other)
  Sender: FDA-Public Use
  Company Number: US-ROCHE-594334

PATIENT
  Sex: Female
  Weight: 74.4 kg

DRUGS (3)
  1. BONIVA [Suspect]
     Indication: PREDISPOSITION TO DISEASE
     Route: 048
     Dates: start: 20080401, end: 20080601
  2. PREDNISONE TAB [Concomitant]
     Indication: PAIN
     Route: 048
  3. ASPIRIN [Concomitant]
     Indication: PAIN
     Route: 048

REACTIONS (1)
  - ATRIAL FIBRILLATION [None]
